FAERS Safety Report 7179667-3 (Version None)
Quarter: 2010Q4

REPORT INFORMATION
  Report Type: 
  Country: None (occurrence: None)
  Receive Date: 20101221
  Receipt Date: 20101213
  Transmission Date: 20110411
  Serious: Yes (Hospitalization)
  Sender: FDA-Public Use
  Company Number: US-SANOFI-AVENTIS-2010SA075130

PATIENT
  Age: 84 Year
  Sex: Male

DRUGS (10)
  1. PLAVIX [Suspect]
     Indication: ENDARTERECTOMY
     Route: 065
     Dates: start: 20101101
  2. LISINOPRIL [Concomitant]
  3. NAMENDA [Concomitant]
  4. MULTI-VITAMINS [Concomitant]
  5. ARICEPT [Concomitant]
  6. ASPIRIN [Concomitant]
  7. OXYBUTYNIN CHLORIDE [Concomitant]
  8. VITAMIN D3 [Concomitant]
  9. MAGNESIUM [Concomitant]
  10. CITALOPRAM [Concomitant]

REACTIONS (1)
  - CHEST PAIN [None]
